FAERS Safety Report 5976536-9 (Version None)
Quarter: 2008Q4

REPORT INFORMATION
  Report Type: 
  Country: None (occurrence: None)
  Receive Date: 20081125
  Receipt Date: 20081029
  Transmission Date: 20090506
  Serious: Yes (Hospitalization, Other)
  Sender: FDA-Public Use
  Company Number: 2008S1019583

PATIENT
  Age: 75 Year
  Sex: Female

DRUGS (2)
  1. DICLOFENAC SODIUM [Suspect]
     Indication: DRUG USE FOR UNKNOWN INDICATION
  2. OMEPRAZOLE [Concomitant]

REACTIONS (9)
  - ABDOMINAL DISTENSION [None]
  - BLOOD ALBUMIN DECREASED [None]
  - DUODENAL STENOSIS [None]
  - GASTRIC ULCER [None]
  - IRON DEFICIENCY ANAEMIA [None]
  - OBSTRUCTION GASTRIC [None]
  - PYLORUS DILATATION [None]
  - SMALL INTESTINE ULCER [None]
  - VOMITING [None]
